FAERS Safety Report 8273480-1 (Version None)
Quarter: 2012Q2

REPORT INFORMATION
  Report Type: 
  Country: None (occurrence: None)
  Receive Date: 20120411
  Receipt Date: 20120402
  Transmission Date: 20120825
  Serious: Yes (Hospitalization, Disabling, Other)
  Sender: FDA-Public Use
  Company Number: GB-BAYER-2012-027831

PATIENT
  Age: 51 Year
  Sex: Male

DRUGS (4)
  1. BETASERON [Suspect]
  2. IBUPROFEN [Concomitant]
     Indication: PREMEDICATION
  3. ACETAMINOPHEN [Concomitant]
     Indication: PREMEDICATION
  4. BETASERON [Suspect]
     Indication: MULTIPLE SCLEROSIS
     Dosage: UNK
     Route: 058
     Dates: start: 20120320

REACTIONS (11)
  - CEREBROVASCULAR ACCIDENT [None]
  - PYREXIA [None]
  - PAIN [None]
  - HEMIPARESIS [None]
  - VISION BLURRED [None]
  - INFLUENZA LIKE ILLNESS [None]
  - FLUSHING [None]
  - INJECTION SITE HAEMATOMA [None]
  - EYE PAIN [None]
  - DYSARTHRIA [None]
  - INJECTION SITE ERYTHEMA [None]
